FAERS Safety Report 25819848 (Version 1)
Quarter: 2025Q3

REPORT INFORMATION
  Report Type: Spontaneous
  Country: US (occurrence: US)
  Receive Date: 20250918
  Receipt Date: 20250918
  Transmission Date: 20251020
  Serious: No
  Sender: KVK-TECH
  Company Number: US-KVK-TECH, INC-20250500065

PATIENT

DRUGS (2)
  1. OXYCODONE HYDROCHLORIDE [Suspect]
     Active Substance: OXYCODONE HYDROCHLORIDE
     Indication: Pain
     Route: 065
     Dates: start: 202504
  2. OXYCODONE HYDROCHLORIDE [Suspect]
     Active Substance: OXYCODONE HYDROCHLORIDE
     Route: 065
     Dates: start: 2024

REACTIONS (8)
  - Muscle spasms [Unknown]
  - Withdrawal syndrome [Unknown]
  - Dyspnoea [Unknown]
  - Fatigue [Unknown]
  - Drug ineffective [Unknown]
  - Product taste abnormal [Unknown]
  - Product physical issue [Unknown]
  - Product quality issue [Unknown]

NARRATIVE: CASE EVENT DATE: 20250201
